FAERS Safety Report 9208766 (Version 1)
Quarter: 2013Q1

REPORT INFORMATION
  Report Type: Spontaneous
  Country: US (occurrence: None)
  Receive Date: 20130220
  Receipt Date: 20130220
  Transmission Date: 20140127
  Serious: Yes (Hospitalization)
  Sender: FDA-Public Use
  Company Number: SP06403

PATIENT
  Age: 64 Year
  Sex: Male
  Weight: 54.43 kg

DRUGS (8)
  1. RELISTOR (INJECTION) [Suspect]
     Indication: CONSTIPATION
     Route: 058
     Dates: end: 2011
  2. AMATIZA [Concomitant]
  3. MIRALAX [Concomitant]
  4. DULCOLAX (TABLET) [Concomitant]
  5. DULCOLAX (SUPPOSITORY) [Concomitant]
  6. OPANA [Concomitant]
  7. VALIUM [Concomitant]
  8. MARINOL [Concomitant]

REACTIONS (5)
  - Abdominal pain upper [None]
  - Vomiting [None]
  - Gastroenteritis [None]
  - Colitis [None]
  - Drug ineffective [None]
